FAERS Safety Report 14713399 (Version 2)
Quarter: 2018Q4

REPORT INFORMATION
  Report Type: Other
  Country: GB (occurrence: GB)
  Receive Date: 20180404
  Receipt Date: 20181112
  Transmission Date: 20190204
  Serious: Yes (Other)
  Sender: FDA-Public Use
  Company Number: GB-LUPIN PHARMACEUTICALS INC.-2018-02659

PATIENT
  Age: 66 Year
  Sex: Female
  Weight: 85.72 kg

DRUGS (5)
  1. BECLOMETASONE [Concomitant]
     Active Substance: BECLOMETHASONE DIPROPIONATE
     Dosage: 200 MCG, QD, SPRAYS TO BOTH NOSTRILS
     Route: 065
     Dates: start: 20180305
  2. BECLOMETASONE [Concomitant]
     Active Substance: BECLOMETHASONE DIPROPIONATE
     Indication: PRODUCT USED FOR UNKNOWN INDICATION
     Dosage: 150 MCG, QD
     Route: 065
     Dates: start: 20180209, end: 20180305
  3. DIAZEPAM. [Concomitant]
     Active Substance: DIAZEPAM
     Indication: PRODUCT USED FOR UNKNOWN INDICATION
     Dosage: 10 MG, QD, FOR 5 DAYS
     Route: 065
     Dates: start: 20180309
  4. SERTRALINE HYDROCHLORIDE TABLETS [Suspect]
     Active Substance: SERTRALINE HYDROCHLORIDE
     Indication: FAMILY STRESS
     Dosage: 50 MG, QD
     Route: 048
     Dates: start: 20180305, end: 20180309
  5. LANSOPRAZOLE. [Concomitant]
     Active Substance: LANSOPRAZOLE
     Indication: PRODUCT USED FOR UNKNOWN INDICATION
     Dosage: 30 MG, QD
     Route: 065
     Dates: start: 20180305

REACTIONS (3)
  - Nightmare [Unknown]
  - Anxiety [Unknown]
  - Flashback [Unknown]
